FAERS Safety Report 23645965 (Version 1)
Quarter: 2024Q1

REPORT INFORMATION
  Report Type: Spontaneous
  Country: DE (occurrence: DE)
  Receive Date: 20240319
  Receipt Date: 20240319
  Transmission Date: 20240409
  Serious: Yes (Other)
  Sender: FDA-Public Use
  Company Number: None

PATIENT

DRUGS (4)
  1. BUPROPION [Suspect]
     Active Substance: BUPROPION
     Indication: Depression
     Dosage: 300 MG, QD
     Route: 065
     Dates: start: 20210506, end: 202202
  2. DULOXETINE [Suspect]
     Active Substance: DULOXETINE
     Indication: Depression
     Dosage: 120 MG, QD
     Route: 065
     Dates: start: 20240205
  3. DULOXETINE [Suspect]
     Active Substance: DULOXETINE
     Dosage: 90 MG, QD
     Route: 065
     Dates: start: 20240129, end: 20240204
  4. DULOXETINE [Suspect]
     Active Substance: DULOXETINE
     Dosage: 60 MG, QD
     Route: 065
     Dates: start: 20240122, end: 20240124

REACTIONS (1)
  - Hepatic enzyme increased [Unknown]
